FAERS Safety Report 4371192-8 (Version None)
Quarter: 2004Q2

REPORT INFORMATION
  Report Type: 
  Country: None (occurrence: None)
  Receive Date: 20040604
  Receipt Date: 20040506
  Transmission Date: 20050107
  Serious: Yes (Other)
  Sender: FDA-Public Use
  Company Number: US-GLAXOSMITHKLINE-A0509840A

PATIENT
  Age: 60 Year
  Sex: Female
  Weight: 86.4 kg

DRUGS (3)
  1. REQUIP [Suspect]
     Indication: RESTLESS LEGS SYNDROME
     Route: 048
     Dates: start: 20040420, end: 20040422
  2. WELLBUTRIN [Suspect]
     Indication: MAJOR DEPRESSION
     Route: 048
     Dates: start: 20020101
  3. CELEXA [Concomitant]
     Route: 048

REACTIONS (4)
  - INSOMNIA [None]
  - MYOCLONUS [None]
  - SIMPLE PARTIAL SEIZURES [None]
  - TREMOR [None]
